FAERS Safety Report 9915485 (Version 2)
Quarter: 2014Q1

REPORT INFORMATION
  Report Type: Report from Study
  Country: US (occurrence: US)
  Receive Date: 20140221
  Receipt Date: 20140221
  Transmission Date: 20141002
  Serious: Yes (Other)
  Sender: FDA-Public Use
  Company Number: US-ROCHE-1052088

PATIENT
  Age: 71 Year
  Sex: Male
  Weight: 72.64 kg

DRUGS (2)
  1. BEVACIZUMAB [Suspect]
     Indication: METASTATIC RENAL CELL CARCINOMA
     Route: 042
     Dates: start: 201110
  2. PREDNISOLONE ACETATE OPHTHALMIC [Concomitant]
     Route: 065

REACTIONS (4)
  - Iridocyclitis [Not Recovered/Not Resolved]
  - Pruritus [Recovering/Resolving]
  - Dysphonia [Not Recovered/Not Resolved]
  - Visual impairment [Not Recovered/Not Resolved]
